FAERS Safety Report 4528563-6 (Version None)
Quarter: 2004Q4

REPORT INFORMATION
  Report Type: 
  Country: None (occurrence: None)
  Receive Date: 20041216
  Receipt Date: 20040824
  Transmission Date: 20050328
  Serious: Yes (Other)
  Sender: FDA-Public Use
  Company Number: PHBS2004JP11325

PATIENT
  Age: 60 Year
  Sex: Male

DRUGS (2)
  1. LAMISIL [Suspect]
     Indication: NAIL TINEA
     Dosage: 125 MG/DAY
     Route: 048
     Dates: start: 20040809, end: 20040820
  2. ALESION [Suspect]
     Indication: URTICARIA
     Dosage: 20 MG/DAY
     Route: 048
     Dates: start: 20040223

REACTIONS (5)
  - ABDOMINAL PAIN [None]
  - BLOOD CREATINE PHOSPHOKINASE INCREASED [None]
  - FLANK PAIN [None]
  - LIVER DISORDER [None]
  - TRANSAMINASES INCREASED [None]
